FAERS Safety Report 19155366 (Version 1)
Quarter: 2021Q2

REPORT INFORMATION
  Report Type: Spontaneous
  Country: US (occurrence: US)
  Receive Date: 20210420
  Receipt Date: 20210420
  Transmission Date: 20210717
  Serious: Yes (Other)
  Sender: FDA-Public Use
  Company Number: US-ASTRAZENECA-2021A310024

PATIENT
  Age: 68 Year
  Sex: Female
  Weight: 83.9 kg

DRUGS (1)
  1. FULVESTRANT. [Suspect]
     Active Substance: FULVESTRANT
     Indication: BREAST CANCER FEMALE
     Dosage: 500 MG, ON DAY 1, 15, 29, THEN EVERY 4 WEEKS
     Route: 030
     Dates: start: 2017

REACTIONS (6)
  - Malignant neoplasm progression [Unknown]
  - Gene mutation [Not Recovered/Not Resolved]
  - Injection site pain [Not Recovered/Not Resolved]
  - Breast cancer recurrent [Not Recovered/Not Resolved]
  - Drug ineffective [Not Recovered/Not Resolved]
  - Muscle spasms [Not Recovered/Not Resolved]

NARRATIVE: CASE EVENT DATE: 2017
